FAERS Safety Report 24312407 (Version 1)
Quarter: 2024Q3

REPORT INFORMATION
  Report Type: Report from Study
  Country: US (occurrence: None)
  Receive Date: 20240912
  Receipt Date: 20240912
  Transmission Date: 20241017
  Serious: Yes (Other)
  Sender: ASTRAZENECA
  Company Number: 2024A203265

PATIENT
  Sex: Female
  Weight: 57.6 kg

DRUGS (3)
  1. LYNPARZA [Suspect]
     Active Substance: OLAPARIB
     Indication: Ovarian cancer
     Route: 048
     Dates: start: 202309
  2. VALTREX [Concomitant]
     Active Substance: VALACYCLOVIR HYDROCHLORIDE
  3. LEXAPRO [Concomitant]
     Active Substance: ESCITALOPRAM OXALATE

REACTIONS (9)
  - Intestinal mass [Unknown]
  - Non-Hodgkin^s lymphoma [Unknown]
  - Hepatic mass [Unknown]
  - Ovarian cancer recurrent [Unknown]
  - Fatigue [Unknown]
  - Nausea [Unknown]
  - Headache [Unknown]
  - Diarrhoea [Unknown]
  - Rhinorrhoea [Unknown]
